FAERS Safety Report 13773607 (Version 2)
Quarter: 2018Q1

REPORT INFORMATION
  Report Type: Spontaneous
  Country: FR (occurrence: FR)
  Receive Date: 20170720
  Receipt Date: 20180207
  Transmission Date: 20180508
  Serious: Yes (Other)
  Sender: FDA-Public Use
  Company Number: PHHY2017FR104113

PATIENT
  Age: 23 Year
  Sex: Female

DRUGS (1)
  1. COSENTYX [Suspect]
     Active Substance: SECUKINUMAB
     Indication: PSORIASIS
     Dosage: 300 MG, QMO
     Route: 058
     Dates: start: 201607

REACTIONS (1)
  - Eosinophilic oesophagitis [Unknown]

NARRATIVE: CASE EVENT DATE: 201611
